FAERS Safety Report 5096973-7 (Version None)
Quarter: 2006Q3

REPORT INFORMATION
  Report Type: 
  Country: None (occurrence: None)
  Receive Date: 20060906
  Receipt Date: 20060824
  Transmission Date: 20061208
  Serious: Yes (Hospitalization, Disabling)
  Sender: FDA-Public Use
  Company Number: 2006CG01435

PATIENT
  Age: 67 Year
  Sex: Male

DRUGS (10)
  1. NEXIUM [Suspect]
     Route: 048
     Dates: start: 20051101, end: 20051201
  2. NEXIUM [Suspect]
     Route: 048
     Dates: start: 20060221
  3. TILCOTIL [Suspect]
     Indication: OSTEOARTHRITIS
     Dates: start: 20051101, end: 20051201
  4. TILCOTIL [Suspect]
     Route: 048
     Dates: start: 20060221, end: 20060327
  5. PLAVIX [Suspect]
     Route: 048
     Dates: start: 20050601, end: 20060401
  6. CHONDROSULF [Suspect]
     Indication: OSTEOARTHRITIS
     Route: 048
     Dates: start: 20051201, end: 20060101
  7. GRANIONS DE CUIVRE [Suspect]
     Indication: OSTEOARTHRITIS
     Dates: start: 20051201, end: 20060101
  8. GRANIONS D'OR [Suspect]
     Indication: OSTEOARTHRITIS
     Dates: start: 20051201, end: 20060101
  9. GRANIONS DE SELENIUM [Suspect]
     Indication: OSTEOARTHRITIS
     Dates: start: 20051201, end: 20060101
  10. LODALES [Concomitant]
     Dates: start: 19940101

REACTIONS (7)
  - AMYOTROPHIC LATERAL SCLEROSIS [None]
  - CHOKING [None]
  - GASTROOESOPHAGEAL REFLUX DISEASE [None]
  - GRUNTING [None]
  - PHOTOPHOBIA [None]
  - RHINORRHOEA [None]
  - URINARY INCONTINENCE [None]
